FAERS Safety Report 8598688-7 (Version None)
Quarter: 2012Q3

REPORT INFORMATION
  Report Type: 
  Country: None (occurrence: None)
  Receive Date: 20120803
  Receipt Date: 20120726
  Transmission Date: 20120928
  Serious: Yes (Hospitalization)
  Sender: FDA-Public Use
  Company Number: DEP_00676_2012

PATIENT
  Sex: Male

DRUGS (1)
  1. GRALISE [Suspect]
     Indication: PRODUCT USED FOR UNKNOWN INDICATION
     Dosage: (300 MG,  FOR SEVERAL DAYS) ; (600 MG, PATIENT TOOK ^A 600 MG DOSE^)

REACTIONS (2)
  - COMA [None]
  - PYREXIA [None]
